FAERS Safety Report 5842687-2 (Version None)
Quarter: 2008Q3

REPORT INFORMATION
  Report Type: 
  Country: None (occurrence: None)
  Receive Date: 20080808
  Receipt Date: 20080730
  Transmission Date: 20090109
  Serious: Yes (Other)
  Sender: FDA-Public Use
  Company Number: SPV1-2008-01626

PATIENT
  Age: 9 Year
  Sex: Male
  Weight: 29.9 kg

DRUGS (4)
  1. VYVANSE [Suspect]
     Indication: ATTENTION DEFICIT/HYPERACTIVITY DISORDER
     Dosage: 30 MG, 1X;DAY:QD, ORAL; 50 MG, 1X;DAY: QD ORAL; 70 MG 1X/DAY:QD, ORAL; 50 MG, 1X/DAY:QD, ORAL
     Route: 047
     Dates: end: 20080127
  2. VYVANSE [Suspect]
     Indication: ATTENTION DEFICIT/HYPERACTIVITY DISORDER
     Dosage: 30 MG, 1X;DAY:QD, ORAL; 50 MG, 1X;DAY: QD ORAL; 70 MG 1X/DAY:QD, ORAL; 50 MG, 1X/DAY:QD, ORAL
     Route: 047
     Dates: start: 20080128, end: 20080502
  3. VYVANSE [Suspect]
     Indication: ATTENTION DEFICIT/HYPERACTIVITY DISORDER
     Dosage: 30 MG, 1X;DAY:QD, ORAL; 50 MG, 1X;DAY: QD ORAL; 70 MG 1X/DAY:QD, ORAL; 50 MG, 1X/DAY:QD, ORAL
     Route: 047
     Dates: start: 20080729, end: 20080730
  4. VYVANSE [Suspect]
     Indication: ATTENTION DEFICIT/HYPERACTIVITY DISORDER
     Dosage: 30 MG, 1X;DAY:QD, ORAL; 50 MG, 1X;DAY: QD ORAL; 70 MG 1X/DAY:QD, ORAL; 50 MG, 1X/DAY:QD, ORAL
     Route: 047
     Dates: start: 20071101

REACTIONS (11)
  - ABNORMAL BEHAVIOUR [None]
  - ANXIETY [None]
  - CONDUCT DISORDER [None]
  - DEPRESSION [None]
  - DISTURBANCE IN ATTENTION [None]
  - EXTRAPYRAMIDAL DISORDER [None]
  - HOMICIDAL IDEATION [None]
  - INSOMNIA [None]
  - PERSECUTORY DELUSION [None]
  - RESTLESSNESS [None]
  - TIC [None]
